FAERS Safety Report 5130740-0 (Version None)
Quarter: 2006Q3

REPORT INFORMATION
  Report Type: 
  Country: None (occurrence: None)
  Receive Date: 20060829
  Receipt Date: 20060731
  Transmission Date: 20061208
  Serious: No
  Sender: FDA-Public Use
  Company Number: PHEH2006US09807

PATIENT
  Sex: Female

DRUGS (1)
  1. EXJADE  DISPERSIBLE TABLET [Suspect]
     Dosage: 20 MG/KG, QD, ORAL
     Route: 048

REACTIONS (3)
  - ASTHENIA [None]
  - DIARRHOEA [None]
  - FLATULENCE [None]
